FAERS Safety Report 6900612-7 (Version None)
Quarter: 2010Q3

REPORT INFORMATION
  Report Type: 
  Country: None (occurrence: None)
  Receive Date: 20100803
  Receipt Date: 20100722
  Transmission Date: 20110219
  Serious: No
  Sender: FDA-Public Use
  Company Number: US-JNJFOC-20100707386

PATIENT
  Sex: Male
  Weight: 77.11 kg

DRUGS (12)
  1. FENTANYL CITRATE [Suspect]
     Indication: FIBROMYALGIA
     Dosage: 75 UG/HR(NDC:0781-7243-55) AND 50 UG/HR (NDC:0781-7242-55)
     Route: 062
  2. FENTANYL CITRATE [Suspect]
     Indication: BACK PAIN
     Dosage: 75 UG/HR(NDC:0781-7243-55) AND 50 UG/HR (NDC:0781-7242-55)
     Route: 062
  3. FENTANYL CITRATE [Suspect]
     Indication: CANCER PAIN
     Dosage: 75 UG/HR(NDC:0781-7243-55) AND 50 UG/HR (NDC:0781-7242-55)
     Route: 062
  4. CLONOPIN [Concomitant]
     Indication: MUSCLE SPASMS
     Dosage: EVERY OTHER NIGHT
     Route: 048
  5. TYLENOL W/ CODEINE NO. 4 [Concomitant]
     Indication: PAIN
     Route: 048
  6. FLEXERIL [Concomitant]
     Indication: MUSCLE RELAXANT THERAPY
     Route: 048
  7. PHENERGAN [Concomitant]
     Indication: VOMITING
     Route: 048
  8. PHENERGAN [Concomitant]
     Indication: NAUSEA
     Route: 048
  9. XANAX [Concomitant]
     Indication: MUSCLE RELAXANT THERAPY
     Route: 048
  10. TRAZODONE [Concomitant]
     Indication: SLEEP DISORDER
     Route: 048
  11. HYDROXYZINE HYDROCHLORIDE [Concomitant]
     Indication: VOMITING
     Route: 048
  12. HYDROXYZINE HYDROCHLORIDE [Concomitant]
     Indication: NAUSEA
     Route: 048

REACTIONS (4)
  - DRUG ADMINISTERED AT INAPPROPRIATE SITE [None]
  - DRUG EFFECT DECREASED [None]
  - PRODUCT QUALITY ISSUE [None]
  - WRONG TECHNIQUE IN DRUG USAGE PROCESS [None]
